FAERS Safety Report 5200036-7 (Version None)
Quarter: 2007Q1

REPORT INFORMATION
  Report Type: 
  Country: None (occurrence: None)
  Receive Date: 20070105
  Receipt Date: 20061228
  Transmission Date: 20070707
  Serious: Yes (Other)
  Sender: FDA-Public Use
  Company Number: US-ELI_LILLY_AND_COMPANY-US200602004332

PATIENT
  Age: 61 Year
  Sex: Male
  Weight: 73.922 kg

DRUGS (8)
  1. SAW PALMETTO [Concomitant]
  2. VITAMIN CAP [Concomitant]
  3. VITAMIN E [Concomitant]
  4. GARLIC [Concomitant]
  5. GLUCOSAMINE [Concomitant]
  6. NASALCROM [Concomitant]
     Indication: NASAL CONGESTION
  7. CIPROFLOXACIN [Concomitant]
     Indication: ANTIBIOTIC PROPHYLAXIS
     Dosage: UNK, UNKNOWN
     Dates: start: 20040101, end: 20040101
  8. CIALIS [Suspect]
     Indication: ERECTILE DYSFUNCTION
     Dosage: 20 MG, AS NEEDED
     Dates: start: 20040216, end: 20051210

REACTIONS (11)
  - ANXIETY [None]
  - BLINDNESS [None]
  - CATARACT [None]
  - COORDINATION ABNORMAL [None]
  - DEPRESSION [None]
  - DISORIENTATION [None]
  - HEADACHE [None]
  - MALAISE [None]
  - OPTIC ISCHAEMIC NEUROPATHY [None]
  - SEXUAL DYSFUNCTION [None]
  - VISION BLURRED [None]
